FAERS Safety Report 9265834 (Version 1)
Quarter: 2013Q2

REPORT INFORMATION
  Report Type: Spontaneous
  Country: US (occurrence: US)
  Receive Date: 20130501
  Receipt Date: 20130501
  Transmission Date: 20140414
  Serious: Yes (Other)
  Sender: FDA-Public Use
  Company Number: US-ASTRAZENECA-2013SE28834

PATIENT
  Age: 56 Year
  Sex: Female
  Weight: 89.8 kg

DRUGS (23)
  1. PRILOSEC [Suspect]
     Indication: GASTROOESOPHAGEAL REFLUX DISEASE
     Route: 048
  2. PRILOSEC OTC [Suspect]
     Indication: GASTROOESOPHAGEAL REFLUX DISEASE
     Route: 048
  3. NEXIUM [Suspect]
     Indication: GASTROOESOPHAGEAL REFLUX DISEASE
     Route: 048
     Dates: end: 2007
  4. NEXIUM [Suspect]
     Indication: GASTROOESOPHAGEAL REFLUX DISEASE
     Route: 048
     Dates: start: 2007, end: 2007
  5. NEXIUM [Suspect]
     Indication: GASTROOESOPHAGEAL REFLUX DISEASE
     Route: 048
     Dates: start: 2007, end: 201304
  6. AUGMENTIN [Concomitant]
     Indication: SINUSITIS
     Route: 048
  7. DOXYCLINE [Concomitant]
     Indication: SINUSITIS
     Route: 048
  8. METHYLPREDNISONE [Concomitant]
     Indication: PYREXIA
     Route: 048
  9. SINGULAR [Concomitant]
     Indication: ASTHMA
     Route: 048
  10. ADVAIR DISC [Concomitant]
     Indication: ASTHMA
     Route: 055
  11. ADVAIR INHALER [Concomitant]
     Indication: ASTHMA
     Dosage: 115MG/21 BID
     Route: 055
  12. PROVENTIL INHALER [Concomitant]
     Indication: ASTHMA
     Dosage: 90MCG BID
     Route: 055
  13. PROVENTIL INHALER [Concomitant]
     Indication: ASTHMA
     Dosage: 60/600 MG
     Route: 055
  14. MUCINEX D ER [Concomitant]
     Indication: SINUS DISORDER
     Route: 048
  15. BENZONATATE [Concomitant]
     Indication: PNEUMONIA
     Route: 048
     Dates: start: 2007
  16. CETIRIZINE HCL [Concomitant]
     Indication: SINUS DISORDER
     Route: 048
  17. AMICEF [Concomitant]
     Indication: SINUS DISORDER
     Route: 048
     Dates: start: 2012
  18. CALCIUM [Concomitant]
     Indication: OSTEOPENIA
     Route: 048
     Dates: start: 2008
  19. MVI [Concomitant]
     Indication: MITOCHONDRIAL CYTOPATHY
     Dosage: DAILY
     Route: 048
  20. ACIDOPHILUS [Concomitant]
     Indication: OROPHARYNGEAL PAIN
     Dosage: TID
     Route: 048
     Dates: start: 2003
  21. IDEBENONE [Concomitant]
     Indication: PAIN
     Route: 048
  22. VITAMIN D [Concomitant]
     Indication: HYPOVITAMINOSIS
     Dosage: 2000 QOD
     Route: 048
     Dates: start: 201302
  23. BAKING SODA [Concomitant]

REACTIONS (25)
  - Metaplasia [Unknown]
  - Pneumothorax [Unknown]
  - Cartilage injury [Unknown]
  - Arthropathy [Unknown]
  - Dysphagia [Unknown]
  - Oropharyngeal pain [Unknown]
  - Oropharyngeal pain [Unknown]
  - Adverse event [Unknown]
  - Pain [Unknown]
  - Hyperchlorhydria [Unknown]
  - Pneumonia [Unknown]
  - Pharyngeal erosion [Unknown]
  - Dysphonia [Unknown]
  - Aphonia [Unknown]
  - Fatigue [Unknown]
  - Vitamin D deficiency [Unknown]
  - Sinus disorder [Unknown]
  - Upper-airway cough syndrome [Unknown]
  - Weight increased [Unknown]
  - Throat irritation [Unknown]
  - Throat irritation [Unknown]
  - Glossitis [Unknown]
  - Glossodynia [Unknown]
  - Drug ineffective [Unknown]
  - Drug dose omission [Unknown]
